FAERS Safety Report 25512648 (Version 1)
Quarter: 2025Q3

REPORT INFORMATION
  Report Type: Spontaneous
  Country: US (occurrence: US)
  Receive Date: 20250703
  Receipt Date: 20250703
  Transmission Date: 20251020
  Serious: No
  Sender: RADIUS PHARM
  Company Number: US-RADIUS HEALTH INC.-2024US005502

PATIENT
  Age: 68 Year
  Sex: Female

DRUGS (1)
  1. TYMLOS [Suspect]
     Active Substance: ABALOPARATIDE
     Indication: Senile osteoporosis
     Route: 058

REACTIONS (12)
  - Blood parathyroid hormone increased [Unknown]
  - Fatigue [Unknown]
  - COVID-19 [Unknown]
  - Confusional state [Unknown]
  - Nausea [Unknown]
  - Contusion [Unknown]
  - Headache [Unknown]
  - Peripheral vascular disorder [Unknown]
  - Fall [Unknown]
  - Bone pain [Unknown]
  - Asthenia [Unknown]
  - Product dose omission issue [Unknown]

NARRATIVE: CASE EVENT DATE: 20241031
